FAERS Safety Report 21321282 (Version 2)
Quarter: 2023Q2

REPORT INFORMATION
  Report Type: Report from Study
  Country: DE (occurrence: DE)
  Receive Date: 20220912
  Receipt Date: 20230509
  Transmission Date: 20230721
  Serious: Yes (Hospitalization, Other)
  Sender: FDA-Public Use
  Company Number: DE-CELLTRION INC.-2022DE011774

PATIENT

DRUGS (2)
  1. TRUXIMA [Suspect]
     Active Substance: RITUXIMAB-ABBS
     Indication: Marginal zone lymphoma
     Dosage: 375 MG/M2, DAY 1 OF EACH CYCLE; LAST ADMINISTRATION PRIOR TO REPORTED SAE: 20-MAY-2022
     Route: 042
     Dates: start: 20220326, end: 20220520
  2. COPANLISIB [Suspect]
     Active Substance: COPANLISIB
     Indication: Marginal zone lymphoma
     Dosage: 60 MG, FIXED DOSE ON DAY 1, 8 AND 15 OF EACH CYCLE (CYCLICAL ON D1, D8 AND D15; LAST ADMINISTRATION
     Route: 042
     Dates: start: 20220325, end: 20220527

REACTIONS (2)
  - Colitis [Recovered/Resolved]
  - Off label use [Unknown]

NARRATIVE: CASE EVENT DATE: 20220601
